FAERS Safety Report 10716087 (Version 1)
Quarter: 2015Q1

REPORT INFORMATION
  Report Type: Spontaneous
  Country: US (occurrence: None)
  Receive Date: 20150115
  Receipt Date: 20150115
  Transmission Date: 20150721
  Serious: Yes (Death, Hospitalization)
  Sender: FDA-Public Use
  Company Number: None

PATIENT
  Age: 60 Year
  Sex: Male
  Weight: 83.5 kg

DRUGS (1)
  1. BEVACIZUMAB [Suspect]
     Active Substance: BEVACIZUMAB
     Dosage: TOTAL DOSE ADMINISTERED - 1336 MG
     Dates: end: 20141231

REACTIONS (10)
  - Hypertensive crisis [None]
  - Hypertension [None]
  - Seizure like phenomena [None]
  - Brain stem infarction [None]
  - Headache [None]
  - Drug dose omission [None]
  - Dizziness [None]
  - Mental status changes [None]
  - Bruxism [None]
  - Musculoskeletal stiffness [None]

NARRATIVE: CASE EVENT DATE: 20150107
